FAERS Safety Report 21203245 (Version 2)
Quarter: 2022Q4

REPORT INFORMATION
  Report Type: Spontaneous
  Country: US (occurrence: US)
  Receive Date: 20220811
  Receipt Date: 20221121
  Transmission Date: 20230113
  Serious: No
  Sender: FDA-Public Use
  Company Number: US-PFIZER INC-2021498414

PATIENT
  Age: 85 Year
  Sex: Male

DRUGS (1)
  1. TOVIAZ [Suspect]
     Active Substance: FESOTERODINE FUMARATE
     Indication: Urinary retention
     Dosage: 4 MG, 1X/DAY

REACTIONS (3)
  - Hypoacusis [Unknown]
  - Visual acuity reduced [Unknown]
  - Off label use [Unknown]
